FAERS Safety Report 12645346 (Version 1)
Quarter: 2016Q3

REPORT INFORMATION
  Report Type: Spontaneous
  Country: US (occurrence: US)
  Receive Date: 20160811
  Receipt Date: 20160811
  Transmission Date: 20161109
  Serious: No
  Sender: FDA-Public Use
  Company Number: US-JAZZ-2016-US-004607

PATIENT
  Sex: Female

DRUGS (37)
  1. RELISTOR [Concomitant]
     Active Substance: METHYLNALTREXONE BROMIDE
  2. FENTANYL. [Concomitant]
     Active Substance: FENTANYL
  3. FLEXERIL [Concomitant]
     Active Substance: CYCLOBENZAPRINE HYDROCHLORIDE
  4. XYREM [Suspect]
     Active Substance: SODIUM OXYBATE
     Indication: NARCOLEPSY
     Dosage: 2.25 G, BID
     Route: 048
     Dates: start: 201105, end: 201106
  5. BUTRANS [Concomitant]
     Active Substance: BUPRENORPHINE
  6. VITAMIN D [Concomitant]
     Active Substance: CHOLECALCIFEROL
  7. KETOROLAC [Concomitant]
     Active Substance: KETOROLAC\KETOROLAC TROMETHAMINE
  8. TRAMADOL HCL [Concomitant]
     Active Substance: TRAMADOL HYDROCHLORIDE
  9. BUTRANS [Concomitant]
     Active Substance: BUPRENORPHINE
  10. LIDODERM [Concomitant]
     Active Substance: LIDOCAINE
  11. PERCOCET [Concomitant]
     Active Substance: ACETAMINOPHEN\OXYCODONE HYDROCHLORIDE
  12. VERAPAMIL [Concomitant]
     Active Substance: VERAPAMIL HYDROCHLORIDE
  13. MULTIVITAMINS [Concomitant]
     Active Substance: VITAMINS
  14. LASIX [Concomitant]
     Active Substance: FUROSEMIDE
  15. TRAMADOL HCL [Concomitant]
     Active Substance: TRAMADOL HYDROCHLORIDE
  16. MIDODRINE HCL [Concomitant]
     Active Substance: MIDODRINE HYDROCHLORIDE
  17. OMEPRAZOLE. [Concomitant]
     Active Substance: OMEPRAZOLE
  18. ZINC GLUCONATE [Concomitant]
     Active Substance: ZINC GLUCONATE
  19. AMITIZA [Concomitant]
     Active Substance: LUBIPROSTONE
  20. LYRICA [Concomitant]
     Active Substance: PREGABALIN
  21. PROVIGIL [Concomitant]
     Active Substance: MODAFINIL
  22. NUVIGIL [Concomitant]
     Active Substance: ARMODAFINIL
  23. CALCIUM MAGNESIUM [Concomitant]
     Active Substance: CALCIUM\MAGNESIUM
  24. CYMBALTA [Concomitant]
     Active Substance: DULOXETINE HYDROCHLORIDE
  25. KEPPRA [Concomitant]
     Active Substance: LEVETIRACETAM
  26. REGLAN [Concomitant]
     Active Substance: METOCLOPRAMIDE HYDROCHLORIDE
  27. VOLTAREN [Concomitant]
     Active Substance: DICLOFENAC SODIUM
  28. XYREM [Suspect]
     Active Substance: SODIUM OXYBATE
     Dosage: 3.75 G, BID
     Route: 048
     Dates: start: 201107, end: 2014
  29. BUTRANS [Concomitant]
     Active Substance: BUPRENORPHINE
  30. REQUIP [Concomitant]
     Active Substance: ROPINIROLE HYDROCHLORIDE
  31. ZANAFLEX [Concomitant]
     Active Substance: TIZANIDINE HYDROCHLORIDE
  32. COUMADIN [Concomitant]
     Active Substance: WARFARIN SODIUM
  33. XYREM [Suspect]
     Active Substance: SODIUM OXYBATE
     Dosage: 4.5 G, BID
     Route: 048
     Dates: start: 201409
  34. PANTOPRAZOLE SODIUM. [Concomitant]
     Active Substance: PANTOPRAZOLE SODIUM
  35. METOPROLOL TARTRATE. [Concomitant]
     Active Substance: METOPROLOL TARTRATE
  36. LEVETIRACETAM. [Concomitant]
     Active Substance: LEVETIRACETAM
  37. LEXAPRO [Concomitant]
     Active Substance: ESCITALOPRAM OXALATE

REACTIONS (1)
  - Pain [Unknown]
